FAERS Safety Report 6236424-X (Version None)
Quarter: 2009Q2

REPORT INFORMATION
  Report Type: 
  Country: None (occurrence: None)
  Receive Date: 20090619
  Receipt Date: 20090615
  Transmission Date: 20091009
  Serious: Yes (Life-Threatening, Hospitalization, Other)
  Sender: FDA-Public Use
  Company Number: NL-ASTRAZENECA-2009SE02798

PATIENT
  Age: 19965 Day
  Sex: Female
  Weight: 74 kg

DRUGS (13)
  1. NEXIUM [Suspect]
     Indication: ABDOMINAL DISCOMFORT
     Route: 048
     Dates: start: 20081212, end: 20090527
  2. PLAVIX [Interacting]
     Indication: PROPHYLAXIS
     Route: 048
     Dates: start: 20090310
  3. ASCAL CARDIO [Concomitant]
     Route: 048
     Dates: start: 20090603
  4. MONO CEDOCARD RETARD [Concomitant]
     Route: 048
     Dates: start: 20090603
  5. FUROSEMIDE ACTAVIS [Concomitant]
     Route: 048
     Dates: start: 20081201
  6. ACENOCOUMAROL SANDOZ [Concomitant]
     Dosage: 3 DOSES TWICE A DAY
     Route: 048
     Dates: start: 20081201
  7. SPIRONOLACTONUM [Concomitant]
     Route: 048
     Dates: start: 20081201
  8. AMIODARON HCL SANDOZ [Concomitant]
     Route: 048
     Dates: start: 20090101
  9. RANITIDINE [Concomitant]
     Route: 048
     Dates: start: 20090527
  10. CARVEDILOL SANDOZ [Concomitant]
     Route: 048
     Dates: start: 20090316
  11. SELEKTINE [Concomitant]
     Route: 048
     Dates: start: 20081216
  12. COZAAR [Concomitant]
     Route: 048
     Dates: start: 20090101
  13. AERIUS [Concomitant]
     Route: 048
     Dates: start: 20040101, end: 20040101

REACTIONS (2)
  - DRUG INEFFECTIVE [None]
  - DRUG INTERACTION [None]
